FAERS Safety Report 6388594-0 (Version None)
Quarter: 2009Q3

REPORT INFORMATION
  Report Type: 
  Country: None (occurrence: None)
  Receive Date: 20090930
  Receipt Date: 20090918
  Transmission Date: 20100115
  Serious: Yes (Death, Hospitalization, Other)
  Sender: FDA-Public Use
  Company Number: 2007-03393

PATIENT
  Age: 49 Year
  Sex: Male
  Weight: 63 kg

DRUGS (7)
  1. VELCADE [Suspect]
     Indication: MULTIPLE MYELOMA
     Dosage: 2 MG, INTRAVENOUS
     Route: 042
     Dates: start: 20070921, end: 20071001
  2. DEXAMETHASONE 0.5MG TAB [Concomitant]
  3. ZOMETA [Concomitant]
  4. IMMUNE GLOBULIN INTRAVENOUS (HUMAN) [Concomitant]
  5. ACETAMINOPHEN [Concomitant]
  6. DIFLUCAN [Concomitant]
  7. LOOD CELLS, PACKED HUMAN (BLOOD CELLS, PACKED HUMAN) [Concomitant]

REACTIONS (18)
  - ALANINE AMINOTRANSFERASE [None]
  - ASPARTATE AMINOTRANSFERASE INCREASED [None]
  - BLOOD ALKALINE PHOSPHATASE INCREASED [None]
  - BLOOD IMMUNOGLOBULIN A INCREASED [None]
  - BLOOD LACTATE DEHYDROGENASE INCREASED [None]
  - BLOOD PRESSURE DECREASED [None]
  - C-REACTIVE PROTEIN INCREASED [None]
  - CREPITATIONS [None]
  - DRUG INEFFECTIVE [None]
  - HERPES ZOSTER [None]
  - KLEBSIELLA INFECTION [None]
  - NEUROPATHY PERIPHERAL [None]
  - PNEUMONIA [None]
  - PNEUMONIA BACTERIAL [None]
  - PNEUMONIA KLEBSIELLA [None]
  - SEPTIC SHOCK [None]
  - TACHYCARDIA [None]
  - URINE OUTPUT DECREASED [None]
